FAERS Safety Report 19763181 (Version 1)
Quarter: 2021Q3

REPORT INFORMATION
  Report Type: Spontaneous
  Country: NL (occurrence: NL)
  Receive Date: 20210830
  Receipt Date: 20210830
  Transmission Date: 20211014
  Serious: Yes (Other)
  Sender: FDA-Public Use
  Company Number: NL-MYLANLABS-2021M1055977

PATIENT
  Sex: Female

DRUGS (3)
  1. FOLLITROPINE ALFA [Concomitant]
     Active Substance: FOLLITROPIN ALFA
     Dosage: UNK
  2. TRIPTORELINE [Concomitant]
     Active Substance: TRIPTORELIN
     Dosage: UNK
  3. SUMATRIPTAN. [Suspect]
     Active Substance: SUMATRIPTAN
     Indication: MIGRAINE
     Dosage: FOR MIGRAINE 1 TABLET, REPEAT IF NECESSARY AFTER 2 HOURS, NO MORE THAN 3 TABLETS PER DAY
     Dates: start: 202002

REACTIONS (2)
  - Maternal exposure during pregnancy [Unknown]
  - Abortion spontaneous [Unknown]
